FAERS Safety Report 12880359 (Version 7)
Quarter: 2017Q1

REPORT INFORMATION
  Report Type: Spontaneous
  Country: US (occurrence: US)
  Receive Date: 20161025
  Receipt Date: 20170307
  Transmission Date: 20170428
  Serious: Yes (Hospitalization, Other)
  Sender: FDA-Public Use
  Company Number: US-PFIZER INC-2016445745

PATIENT
  Age: 74 Year
  Sex: Male
  Weight: 77.98 kg

DRUGS (7)
  1. HYDROCHLOROTHIAZIDE. [Concomitant]
     Active Substance: HYDROCHLOROTHIAZIDE
     Dosage: UNK
  2. SUTENT [Suspect]
     Active Substance: SUNITINIB MALATE
     Indication: METASTATIC RENAL CELL CARCINOMA
     Dosage: 37.5 MG, DAILY
     Dates: start: 20160929
  3. VASOTEC [Concomitant]
     Active Substance: ENALAPRIL MALEATE
     Dosage: UNK
  4. COQ10 [Concomitant]
     Active Substance: UBIDECARENONE
     Dosage: UNK
  5. SIMVASTATIN. [Concomitant]
     Active Substance: SIMVASTATIN
     Dosage: UNK
  6. BIOTIN [Concomitant]
     Active Substance: BIOTIN
     Dosage: UNK
  7. VITAMIN D [Concomitant]
     Active Substance: CHOLECALCIFEROL
     Dosage: UNK

REACTIONS (14)
  - Dyspnoea exertional [Recovering/Resolving]
  - Pleural effusion [Unknown]
  - Dysgeusia [Recovering/Resolving]
  - Pulmonary thrombosis [Recovering/Resolving]
  - Weight decreased [Recovering/Resolving]
  - Condition aggravated [Recovering/Resolving]
  - Hepatic enzyme increased [Unknown]
  - Weight increased [Unknown]
  - Nasopharyngitis [Unknown]
  - Decreased appetite [Unknown]
  - Rash [Unknown]
  - Depression [Unknown]
  - Fatigue [Unknown]
  - Cough [Not Recovered/Not Resolved]

NARRATIVE: CASE EVENT DATE: 2016
